FAERS Safety Report 9447747 (Version 2)
Quarter: 2013Q3

REPORT INFORMATION
  Report Type: Spontaneous
  Country: US (occurrence: US)
  Receive Date: 20130808
  Receipt Date: 20130808
  Transmission Date: 20140515
  Serious: Yes (Other)
  Sender: FDA-Public Use
  Company Number: US-BAYER-2013-093336

PATIENT
  Age: 70 Year
  Sex: Male

DRUGS (3)
  1. NEXAVAR [Suspect]
     Indication: HEPATIC CANCER
     Dosage: 400 MG, BID
     Route: 048
     Dates: start: 20130710, end: 201307
  2. NEXAVAR [Suspect]
     Indication: HEPATIC CANCER
     Dosage: 400 MG, BID
     Route: 048
     Dates: start: 201307
  3. PRADAXA [Concomitant]

REACTIONS (9)
  - Chondrocalcinosis pyrophosphate [None]
  - Palmar-plantar erythrodysaesthesia syndrome [None]
  - Skin ulcer haemorrhage [None]
  - Nausea [None]
  - Diarrhoea [None]
  - Constipation [None]
  - Headache [None]
  - Abdominal pain [None]
  - Contusion [None]
